FAERS Safety Report 4825725-5 (Version None)
Quarter: 2005Q4

REPORT INFORMATION
  Report Type: 
  Country: None (occurrence: None)
  Receive Date: 20051111
  Receipt Date: 20051107
  Transmission Date: 20060501
  Serious: Yes (Hospitalization)
  Sender: FDA-Public Use
  Company Number: MX-BOEHRINGER INGELHEIM PHARMACEUTICALS, INC.-2005-BP-19345MX

PATIENT
  Age: 74 Year
  Sex: Male

DRUGS (2)
  1. SECOTEX CAPSULES 0.4MG [Suspect]
     Indication: URINARY RETENTION
     Route: 048
     Dates: start: 20050228
  2. NON-SPECIFIED URINARY ANTISEPTIC MEDICATION [Concomitant]

REACTIONS (3)
  - DRUG INEFFECTIVE [None]
  - OFF LABEL USE [None]
  - TREATMENT NONCOMPLIANCE [None]
